FAERS Safety Report 9156722 (Version 1)
Quarter: 2013Q1

REPORT INFORMATION
  Report Type: Spontaneous
  Country: AU (occurrence: None)
  Receive Date: 20130211
  Receipt Date: 20130211
  Transmission Date: 20140127
  Serious: Yes (Other)
  Sender: FDA-Public Use
  Company Number: INT_00209_2013

PATIENT
  Age: 6 Year
  Sex: Female
  Weight: 30.4 kg

DRUGS (1)
  1. CEFTRIAXONE [Suspect]
     Indication: MENINGITIS MENINGOCOCCAL
     Dosage: [ALSO NOTED AS 1.5 G] INTRAVENOUS (NOT OTHERWISE SPECIFIED))
     Route: 042
     Dates: start: 20121008, end: 20121017

REACTIONS (1)
  - Cholelithiasis [None]
